FAERS Safety Report 24679879 (Version 2)
Quarter: 2025Q3

REPORT INFORMATION
  Report Type: Report from Study
  Country: US (occurrence: US)
  Receive Date: 20241129
  Receipt Date: 20250802
  Transmission Date: 20251020
  Serious: Yes (Hospitalization, Other)
  Sender: ALEXION PHARMACEUTICALS
  Company Number: US-AstraZeneca-CH-00752545A

PATIENT
  Age: 70 Year
  Sex: Male

DRUGS (4)
  1. TICAGRELOR [Suspect]
     Active Substance: TICAGRELOR
     Indication: Myocardial infarction
     Dosage: 60 MILLIGRAM
  2. TICAGRELOR [Suspect]
     Active Substance: TICAGRELOR
     Indication: Stent placement
  3. BUDESONIDE\FORMOTEROL\GLYCOPYRRONIUM [Suspect]
     Active Substance: BUDESONIDE\FORMOTEROL\GLYCOPYRRONIUM
     Indication: Chronic obstructive pulmonary disease
  4. ASPIRIN [Concomitant]
     Active Substance: ASPIRIN
     Route: 065

REACTIONS (19)
  - Myocardial infarction [Recovering/Resolving]
  - Fall [Unknown]
  - Epistaxis [Unknown]
  - Loss of consciousness [Unknown]
  - Dementia Alzheimer^s type [Unknown]
  - Dementia [Unknown]
  - Dyspnoea [Unknown]
  - Mental disorder [Unknown]
  - Ligament disorder [Unknown]
  - Atrioventricular block [Unknown]
  - Haemorrhage [Unknown]
  - Hypokinesia [Unknown]
  - Insurance issue [Unknown]
  - Illness [Unknown]
  - Respiration abnormal [Unknown]
  - Diarrhoea [Unknown]
  - Muscular weakness [Unknown]
  - Pain in extremity [Unknown]
  - Arthritis [Unknown]

NARRATIVE: CASE EVENT DATE: 20241102
